FAERS Safety Report 20769069 (Version 1)
Quarter: 2022Q2

REPORT INFORMATION
  Report Type: Spontaneous
  Country: JP (occurrence: JP)
  Receive Date: 20220429
  Receipt Date: 20220429
  Transmission Date: 20220721
  Serious: Yes (Hospitalization, Disabling)
  Sender: FDA-Public Use
  Company Number: JP-NOVOPROD-912333

PATIENT
  Age: 86 Year
  Sex: Female

DRUGS (1)
  1. RYZODEG 70/30 [Suspect]
     Active Substance: INSULIN ASPART\INSULIN DEGLUDEC
     Indication: Diabetes mellitus
     Dosage: UNK (ONCE WEEKLY BEFORE DINNER))
     Route: 058

REACTIONS (2)
  - Hypoglycaemic encephalopathy [Recovered/Resolved with Sequelae]
  - Inappropriate schedule of product administration [Unknown]
